FAERS Safety Report 9171058 (Version 1)
Quarter: 2013Q1

REPORT INFORMATION
  Report Type: Spontaneous
  Country: KR (occurrence: None)
  Receive Date: 20130312
  Receipt Date: 20130312
  Transmission Date: 20140127
  Serious: Yes (Other)
  Sender: FDA-Public Use
  Company Number: 13-F-KR-00080

PATIENT
  Age: 52 Year
  Sex: Male

DRUGS (1)
  1. FOLOTYN (PRALATREXATE) [Suspect]
     Indication: PERIPHERAL T-CELL LYMPHOMA UNSPECIFIED
     Route: 042

REACTIONS (2)
  - Peripheral T-cell lymphoma unspecified [None]
  - Malignant neoplasm progression [None]
